FAERS Safety Report 10743746 (Version 3)
Quarter: 2015Q1

REPORT INFORMATION
  Report Type: Spontaneous
  Country: IT (occurrence: IT)
  Receive Date: 20150128
  Receipt Date: 20150219
  Transmission Date: 20150721
  Serious: Yes (Other)
  Sender: FDA-Public Use
  Company Number: IT-ACCORD-028195

PATIENT
  Age: 76 Year
  Sex: Female
  Weight: 70 kg

DRUGS (7)
  1. CARDURA [Concomitant]
     Active Substance: DOXAZOSIN MESYLATE
  2. AVASTIN [Suspect]
     Active Substance: BEVACIZUMAB
     Indication: RECTAL CANCER METASTATIC
     Route: 042
     Dates: start: 20140626
  3. FLUOROURACIL. [Suspect]
     Active Substance: FLUOROURACIL
     Indication: RECTAL CANCER METASTATIC
     Dosage: ALSO RECEIVED 700 MG INTRAVENOUS BOLUS.
     Route: 041
     Dates: start: 20140626
  4. OXALIPLATIN. [Suspect]
     Active Substance: OXALIPLATIN
     Indication: RECTAL CANCER METASTATIC
     Route: 042
     Dates: start: 20140626
  5. CARDICOR [Concomitant]
     Active Substance: BISOPROLOL
  6. SIVASTIN [Concomitant]
     Active Substance: SIMVASTATIN
  7. LEVOFOLINIC ACID [Concomitant]
     Active Substance: LEVOLEUCOVORIN
     Route: 042
     Dates: start: 20140626, end: 20141211

REACTIONS (3)
  - Gastrointestinal motility disorder [Recovering/Resolving]
  - Hypertensive crisis [Recovering/Resolving]
  - Paraesthesia [Recovering/Resolving]

NARRATIVE: CASE EVENT DATE: 20140829
